FAERS Safety Report 6909222-9 (Version None)
Quarter: 2010Q3

REPORT INFORMATION
  Report Type: 
  Country: None (occurrence: None)
  Receive Date: 20100805
  Receipt Date: 20100301
  Transmission Date: 20110219
  Serious: Yes (Other)
  Sender: FDA-Public Use
  Company Number: DE-GILEAD-2010-0027380

PATIENT
  Sex: Female
  Weight: 92 kg

DRUGS (10)
  1. ATRIPLA [Suspect]
     Indication: HIV INFECTION
     Route: 048
     Dates: start: 20080421, end: 20100222
  2. SYMBICORT DA [Concomitant]
     Indication: ASTHMA
     Dates: start: 20090206
  3. BEROTEC [Concomitant]
     Indication: ASTHMA
     Dates: start: 20090206
  4. OMEPRAZOLE [Concomitant]
     Route: 048
     Dates: start: 20100105
  5. APROVEL [Concomitant]
     Indication: HYPERTENSION
     Route: 048
     Dates: start: 20100208
  6. BISOPROLOL [Concomitant]
     Indication: HYPERTENSION
     Route: 048
     Dates: start: 20100208
  7. TORASEMID [Concomitant]
     Indication: HYPERTENSION
     Route: 048
     Dates: start: 20100208
  8. RAMIPRIL [Concomitant]
     Indication: HYPERTENSION
     Route: 048
     Dates: start: 20090207, end: 20100207
  9. AMLODIPINE [Concomitant]
     Indication: HYPERTENSION
     Route: 048
     Dates: start: 20100208, end: 20100222
  10. AMLODIPINE [Concomitant]
     Route: 048
     Dates: start: 20100223

REACTIONS (1)
  - RENAL FAILURE [None]
